FAERS Safety Report 7401894-8 (Version None)
Quarter: 2011Q2

REPORT INFORMATION
  Report Type: 
  Country: None (occurrence: None)
  Receive Date: 20110408
  Receipt Date: 20110324
  Transmission Date: 20111010
  Serious: Yes (Other)
  Sender: FDA-Public Use
  Company Number: SE-JNJFOC-20110311088

PATIENT
  Age: 22 Year
  Sex: Female

DRUGS (2)
  1. AZATHIOPRINE [Concomitant]
     Route: 065
  2. REMICADE [Suspect]
     Indication: CROHN'S DISEASE
     Dosage: RECEIVED A TOTAL OF 7 INFUSIONS
     Route: 042

REACTIONS (3)
  - ORBITAL OEDEMA [None]
  - HIRSUTISM [None]
  - URTICARIA [None]
